FAERS Safety Report 5798366-3 (Version None)
Quarter: 2008Q3

REPORT INFORMATION
  Report Type: 
  Country: None (occurrence: None)
  Receive Date: 20080702
  Receipt Date: 20070912
  Transmission Date: 20090109
  Serious: No
  Sender: FDA-Public Use
  Company Number: A0678418A

PATIENT
  Age: 51 Year
  Sex: Female

DRUGS (3)
  1. PARNATE [Suspect]
     Indication: MAJOR DEPRESSION
     Dosage: 40MG TWICE PER DAY
     Route: 048
     Dates: start: 19820101
  2. SPIRALINA [Suspect]
     Indication: DRUG USE FOR UNKNOWN INDICATION
     Route: 065
  3. UNSPECIFIED MEDICATION [Concomitant]

REACTIONS (7)
  - ANXIETY [None]
  - DEPRESSION [None]
  - DRUG INTERACTION [None]
  - HEADACHE [None]
  - INSOMNIA [None]
  - PALPITATIONS [None]
  - VIRAL INFECTION [None]
